FAERS Safety Report 18510242 (Version 1)
Quarter: 2020Q4

REPORT INFORMATION
  Report Type: Spontaneous
  Country: FR (occurrence: FR)
  Receive Date: 20201117
  Receipt Date: 20201117
  Transmission Date: 20210114
  Serious: Yes (Other)
  Sender: FDA-Public Use
  Company Number: FR-ACCORD-208345

PATIENT
  Age: 69 Year
  Sex: Male
  Weight: 68 kg

DRUGS (11)
  1. RAMIPRIL. [Concomitant]
     Active Substance: RAMIPRIL
     Route: 048
  2. BINOCRIT [Suspect]
     Active Substance: ERYTHROPOIETIN
     Indication: ANAEMIA
     Dosage: STRENGTH: 40,000 IU/ML
     Route: 058
     Dates: start: 20200909
  3. LIPTRUZET [Concomitant]
     Active Substance: ATORVASTATIN CALCIUM\EZETIMIBE
     Dosage: STRENGTH:10 MG / 40 MG
     Route: 048
  4. BISOPROLOL [Concomitant]
     Active Substance: BISOPROLOL
     Route: 048
  5. GEMCITABINE ACCORD [Suspect]
     Active Substance: GEMCITABINE HYDROCHLORIDE
     Indication: METASTATIC BRONCHIAL CARCINOMA
     Dosage: STRENGTH: 1000 MG
     Route: 042
     Dates: start: 20200826
  6. KEPPRA [Concomitant]
     Active Substance: LEVETIRACETAM
     Dosage: STRENGTH:500 MG
     Route: 048
  7. CHIBRO PROSCAR [Concomitant]
     Active Substance: FINASTERIDE
     Route: 048
  8. VIMPAT [Concomitant]
     Active Substance: LACOSAMIDE
     Dosage: STRENGTH:50 MG
     Route: 048
  9. PANTOPRAZOLE [Suspect]
     Active Substance: PANTOPRAZOLE
     Indication: PROPHYLAXIS
     Route: 048
     Dates: start: 20200923
  10. LEXOMIL [Concomitant]
     Active Substance: BROMAZEPAM
     Route: 048
  11. PRADAXA [Concomitant]
     Active Substance: DABIGATRAN ETEXILATE MESYLATE
     Route: 048
     Dates: start: 20200213

REACTIONS (2)
  - Cutaneous lupus erythematosus [Not Recovered/Not Resolved]
  - Condition aggravated [Not Recovered/Not Resolved]

NARRATIVE: CASE EVENT DATE: 202010
